FAERS Safety Report 4699512-5 (Version None)
Quarter: 2005Q2

REPORT INFORMATION
  Report Type: 
  Country: None (occurrence: None)
  Receive Date: 20050622
  Receipt Date: 20050617
  Transmission Date: 20051028
  Serious: Yes (Other)
  Sender: FDA-Public Use
  Company Number: 200511877GDS

PATIENT
  Age: 66 Year
  Sex: Male

DRUGS (4)
  1. BUFFERIN [Suspect]
     Indication: ANTICOAGULANT THERAPY
     Dosage: ORAL
     Route: 048
     Dates: start: 20040101
  2. TICLOPIDINE HYDROCHLORIDE [Suspect]
     Indication: ANTICOAGULANT THERAPY
     Dosage: ORAL
     Route: 048
     Dates: start: 20040101
  3. HEPARIN [Suspect]
     Indication: ANTICOAGULANT THERAPY
     Dosage: INTRAVENOUS
     Route: 042
     Dates: start: 20040101
  4. CILOSTAZOL [Suspect]
     Indication: ANTICOAGULANT THERAPY
     Dosage: ORAL
     Route: 048
     Dates: start: 20040101

REACTIONS (8)
  - ABDOMINAL PAIN [None]
  - ATELECTASIS [None]
  - CHEST PAIN [None]
  - HAEMATEMESIS [None]
  - HAEMATOMA [None]
  - LUNG DISORDER [None]
  - OESOPHAGEAL DISORDER [None]
  - PLEURAL EFFUSION [None]
